FAERS Safety Report 23078824 (Version 1)
Quarter: 2023Q4

REPORT INFORMATION
  Report Type: Spontaneous
  Country: JP (occurrence: JP)
  Receive Date: 20231018
  Receipt Date: 20231018
  Transmission Date: 20240110
  Serious: No
  Sender: FDA-Public Use
  Company Number: JP-NShinyaku-EVA202306444ZZLILLY

PATIENT
  Age: 55 Year
  Sex: Male

DRUGS (1)
  1. TADALAFIL [Suspect]
     Active Substance: TADALAFIL
     Indication: Product used for unknown indication
     Dosage: UNK UNK, UNKNOWN
     Route: 048

REACTIONS (6)
  - Migraine [Unknown]
  - Palpitations [Unknown]
  - Conjunctival hyperaemia [Unknown]
  - Dyspepsia [Unknown]
  - Nausea [Unknown]
  - Dizziness [Unknown]
